FAERS Safety Report 18587644 (Version 1)
Quarter: 2020Q4

REPORT INFORMATION
  Report Type: Report from Study
  Country: US (occurrence: US)
  Receive Date: 20201207
  Receipt Date: 20201207
  Transmission Date: 20210114
  Serious: Yes (Death)
  Sender: FDA-Public Use
  Company Number: US-ASTRAZENECA-2020SF62438

PATIENT
  Age: 68 Year
  Sex: Female

DRUGS (3)
  1. OXYCODONE HYDROCHLORIDE. [Concomitant]
     Active Substance: OXYCODONE HYDROCHLORIDE
     Dosage: 10.0MG UNKNOWN
  2. LYNPARZA [Suspect]
     Active Substance: OLAPARIB
     Indication: MULTIPLE SCLEROSIS
     Route: 048
     Dates: start: 20200812
  3. IBUPROFEN. [Concomitant]
     Active Substance: IBUPROFEN
     Dosage: 200.0MG UNKNOWN

REACTIONS (1)
  - Death [Fatal]
